FAERS Safety Report 7481138-1 (Version None)
Quarter: 2011Q2

REPORT INFORMATION
  Report Type: 
  Country: None (occurrence: None)
  Receive Date: 20110512
  Receipt Date: 20110512
  Transmission Date: 20111010
  Serious: No
  Sender: FDA-Public Use
  Company Number: None

PATIENT
  Sex: Male
  Weight: 65.7716 kg

DRUGS (1)
  1. CITALOPRAM HYDROBROMIDE [Suspect]
     Indication: DEPRESSION
     Dosage: 5 MG 1 PER ORAL
     Route: 048
     Dates: start: 20110413

REACTIONS (5)
  - INSOMNIA [None]
  - VISUAL IMPAIRMENT [None]
  - DIARRHOEA [None]
  - ENERGY INCREASED [None]
  - VISION BLURRED [None]
